FAERS Safety Report 10035462 (Version 4)
Quarter: 2014Q2

REPORT INFORMATION
  Report Type: Spontaneous
  Country: US (occurrence: US)
  Receive Date: 20140325
  Receipt Date: 20140512
  Transmission Date: 20141212
  Serious: No
  Sender: FDA-Public Use
  Company Number: US-PFIZER INC-2014082087

PATIENT
  Age: 72 Year
  Sex: Female
  Weight: 86.17 kg

DRUGS (5)
  1. ADVIL [Suspect]
     Indication: PAIN IN EXTREMITY
     Dosage: 200 MG, DAILY AT BED TIME
     Dates: start: 20140314
  2. ADVIL [Suspect]
     Dosage: UNK
     Dates: start: 2014
  3. PROPRANOLOL [Concomitant]
     Indication: BLOOD PRESSURE
     Dosage: UNK
  4. CAPOTEN [Concomitant]
     Indication: BLOOD PRESSURE
     Dosage: UNK
  5. GLIPIZIDE [Concomitant]
     Indication: DIABETES MELLITUS
     Dosage: UNK

REACTIONS (6)
  - Poor quality drug administered [Unknown]
  - Blood magnesium decreased [Unknown]
  - Eye pain [Unknown]
  - Pain [Unknown]
  - Epistaxis [Unknown]
  - Product physical issue [Unknown]
